FAERS Safety Report 6830109-4 (Version None)
Quarter: 2010Q3

REPORT INFORMATION
  Report Type: 
  Country: None (occurrence: None)
  Receive Date: 20100711
  Receipt Date: 20100521
  Transmission Date: 20110219
  Serious: No
  Sender: FDA-Public Use
  Company Number: US-ALLERGAN-1006698US

PATIENT
  Age: 71 Year
  Sex: Female

DRUGS (17)
  1. LATISSE [Suspect]
     Indication: GROWTH OF EYELASHES
     Dosage: 1 GTT, QHS
     Route: 061
     Dates: start: 20091201
  2. PREMPRO [Concomitant]
     Indication: HORMONE REPLACEMENT THERAPY
  3. TRIAMTERENE [Concomitant]
     Indication: FLUID RETENTION
  4. MARSHMALLOW [Concomitant]
     Indication: PHYTOTHERAPY
  5. SLIPPERY ELM [Concomitant]
     Indication: PHYTOTHERAPY
  6. CIRCUCAPS [Concomitant]
     Indication: PHYTOTHERAPY
  7. EIGHT FLOWERS REHMANNIA [Concomitant]
     Indication: PHYTOTHERAPY
  8. SKULLCAP [Concomitant]
     Indication: PHYTOTHERAPY
  9. RESVERATROL [Concomitant]
     Indication: PHYTOTHERAPY
  10. PAIN EX [Concomitant]
     Indication: BACK PAIN
  11. BACK SUPPORT CHRONIC [Concomitant]
  12. VITAMIN C [Concomitant]
  13. VITAMIN D [Concomitant]
  14. VITAMIN E COMPLEX [Concomitant]
  15. OMEGA AVAIL SYNERGY [Concomitant]
  16. INFLAMMATONE [Concomitant]
  17. CALCIUM MAGNESIUM CITRATE [Concomitant]

REACTIONS (2)
  - EYELASH DISCOLOURATION [None]
  - MADAROSIS [None]
